FAERS Safety Report 8824535 (Version 2)
Quarter: 2013Q2

REPORT INFORMATION
  Report Type: Spontaneous
  Country: BR (occurrence: BR)
  Receive Date: 20121004
  Receipt Date: 20130509
  Transmission Date: 20140414
  Serious: Yes (Other)
  Sender: FDA-Public Use
  Company Number: BR-JNJFOC-20120912457

PATIENT
  Age: 64 Year
  Sex: Female
  Weight: 70 kg

DRUGS (5)
  1. REMICADE [Suspect]
     Indication: RHEUMATOID ARTHRITIS
     Dosage: 5TH INFUSION
     Route: 042
     Dates: start: 20120822, end: 20120923
  2. REMICADE [Suspect]
     Indication: RHEUMATOID ARTHRITIS
     Route: 042
     Dates: start: 2012
  3. PREDNISONE [Concomitant]
     Route: 065
     Dates: end: 2012
  4. SULFASALAZINE [Concomitant]
     Route: 065
     Dates: end: 2012
  5. RIVOTRIL [Concomitant]
     Indication: SLEEP DISORDER THERAPY
     Route: 065

REACTIONS (17)
  - Pneumonia [Recovering/Resolving]
  - Adverse event [Recovered/Resolved]
  - Bronchitis [Not Recovered/Not Resolved]
  - Gait disturbance [Not Recovered/Not Resolved]
  - Insomnia [Not Recovered/Not Resolved]
  - Rheumatoid arthritis [Not Recovered/Not Resolved]
  - Rash erythematous [Not Recovered/Not Resolved]
  - Pruritus [Not Recovered/Not Resolved]
  - Skin exfoliation [Not Recovered/Not Resolved]
  - Pyrexia [Recovering/Resolving]
  - Musculoskeletal chest pain [Recovering/Resolving]
  - Wheezing [Recovering/Resolving]
  - Oropharyngeal pain [Recovering/Resolving]
  - Blood pressure abnormal [Recovering/Resolving]
  - Pain in extremity [Unknown]
  - Nail growth abnormal [Not Recovered/Not Resolved]
  - Hypersensitivity [Unknown]
